FAERS Safety Report 7998217-2 (Version None)
Quarter: 2011Q4

REPORT INFORMATION
  Report Type: 
  Country: None (occurrence: None)
  Receive Date: 20111221
  Receipt Date: 20110418
  Transmission Date: 20120403
  Serious: No
  Sender: FDA-Public Use
  Company Number: US-GLAXOSMITHKLINE-A0923356A

PATIENT
  Age: 49 Year
  Sex: Female

DRUGS (3)
  1. LOVAZA [Suspect]
     Indication: BLOOD TRIGLYCERIDES INCREASED
     Dosage: 3CAP PER DAY
     Route: 048
     Dates: start: 20110328
  2. DEXLANSOPRAZOLE [Suspect]
  3. ANTI-DIABETIC MEDICATION [Concomitant]

REACTIONS (3)
  - HOT FLUSH [None]
  - PERIPHERAL SENSORY NEUROPATHY [None]
  - ADVERSE DRUG REACTION [None]
